FAERS Safety Report 21242077 (Version 1)
Quarter: 2022Q3

REPORT INFORMATION
  Report Type: Report from Study
  Country: JP (occurrence: JP)
  Receive Date: 20220823
  Receipt Date: 20220823
  Transmission Date: 20221026
  Serious: Yes (Other)
  Sender: FDA-Public Use
  Company Number: JP-SUN PHARMACEUTICAL INDUSTRIES LTD-2022R1-351720

PATIENT
  Age: 3 Decade
  Sex: Female

DRUGS (8)
  1. LATANOPROST [Suspect]
     Active Substance: LATANOPROST
     Indication: Glaucoma
     Dosage: UNK
     Route: 065
  2. LATANOPROST [Suspect]
     Active Substance: LATANOPROST
     Indication: Uveitis
  3. BETAMETHASONE [Suspect]
     Active Substance: BETAMETHASONE
     Indication: Glaucoma
     Dosage: UNK
     Route: 065
  4. BETAMETHASONE [Suspect]
     Active Substance: BETAMETHASONE
     Indication: Uveitis
  5. PHENYLEPHRINE\TROPICAMIDE [Suspect]
     Active Substance: PHENYLEPHRINE\TROPICAMIDE
     Indication: Glaucoma
     Dosage: UNK
     Route: 065
  6. PHENYLEPHRINE\TROPICAMIDE [Suspect]
     Active Substance: PHENYLEPHRINE\TROPICAMIDE
     Indication: Uveitis
  7. CARTEOLOL [Suspect]
     Active Substance: CARTEOLOL
     Indication: Uveitis
     Dosage: UNK
     Route: 065
  8. CARTEOLOL [Suspect]
     Active Substance: CARTEOLOL
     Indication: Glaucoma

REACTIONS (2)
  - Abortion missed [Unknown]
  - Exposure during pregnancy [Unknown]
